FAERS Safety Report 8837038 (Version 1)
Quarter: 2012Q4

REPORT INFORMATION
  Report Type: Spontaneous
  Country: US (occurrence: None)
  Receive Date: 20121011
  Receipt Date: 20121011
  Transmission Date: 20130627
  Serious: Yes (Hospitalization)
  Sender: FDA-Public Use
  Company Number: None

PATIENT
  Age: 53 Year
  Sex: Male
  Weight: 112.8 kg

DRUGS (1)
  1. HYDRALAZINE [Suspect]
     Dosage: MG PO
     Route: 048
     Dates: start: 20120901, end: 20120910

REACTIONS (1)
  - Angioedema [None]
